FAERS Safety Report 22319881 (Version 2)
Quarter: 2023Q2

REPORT INFORMATION
  Report Type: Spontaneous
  Country: US (occurrence: US)
  Receive Date: 20230515
  Receipt Date: 20230614
  Transmission Date: 20230722
  Serious: No
  Sender: FDA-Public Use
  Company Number: US-PFIZER INC-202300186608

PATIENT
  Age: 14 Year
  Sex: Male
  Weight: 45.36 kg

DRUGS (2)
  1. GENOTROPIN [Suspect]
     Active Substance: SOMATROPIN
     Indication: Growth hormone deficiency
     Dosage: 2 UG, 1X/DAY (IN EVENING)
  2. GENOTROPIN [Suspect]
     Active Substance: SOMATROPIN
     Indication: Short stature

REACTIONS (6)
  - Drug dose omission by device [Unknown]
  - Device difficult to use [Unknown]
  - Device use issue [Unknown]
  - Device information output issue [Unknown]
  - Product contamination physical [Unknown]
  - Product prescribing error [Unknown]

NARRATIVE: CASE EVENT DATE: 20230101
